FAERS Safety Report 12916720 (Version 1)
Quarter: 2016Q4

REPORT INFORMATION
  Report Type: Spontaneous
  Country: US (occurrence: US)
  Receive Date: 20161107
  Receipt Date: 20161107
  Transmission Date: 20170207
  Serious: No
  Sender: FDA-Public Use
  Company Number: US-JAZZ-2016-US-017322

PATIENT
  Sex: Female

DRUGS (48)
  1. XYREM [Suspect]
     Active Substance: SODIUM OXYBATE
     Dosage: 2.25 G, BID
     Route: 048
     Dates: start: 201108, end: 201108
  2. HYDROXYZINE HCL [Concomitant]
     Active Substance: HYDROXYZINE HYDROCHLORIDE
  3. VITAMIN D [Concomitant]
     Active Substance: CHOLECALCIFEROL
  4. ATORVASTATIN [Concomitant]
     Active Substance: ATORVASTATIN
  5. METHYLPHENIDATE. [Concomitant]
     Active Substance: METHYLPHENIDATE
  6. XYREM [Suspect]
     Active Substance: SODIUM OXYBATE
     Dosage: 2.25 G, BID
     Route: 048
     Dates: start: 201011, end: 2011
  7. XYREM [Suspect]
     Active Substance: SODIUM OXYBATE
     Dosage: 3.75 G, BID
     Route: 048
     Dates: start: 201108, end: 201109
  8. PEPTO-BISMOL [Concomitant]
     Active Substance: BISMUTH SUBSALICYLATE
  9. LIDODERM [Concomitant]
     Active Substance: LIDOCAINE
  10. CLONAZEPAM. [Concomitant]
     Active Substance: CLONAZEPAM
  11. ASPIRIN. [Concomitant]
     Active Substance: ASPIRIN
  12. FENTANYL. [Concomitant]
     Active Substance: FENTANYL
  13. PROVIGIL [Concomitant]
     Active Substance: MODAFINIL
  14. CHLORZOXAZONE. [Concomitant]
     Active Substance: CHLORZOXAZONE
  15. PROTONIX [Concomitant]
     Active Substance: PANTOPRAZOLE SODIUM
  16. NYQUIL COLD AND FLU [Concomitant]
     Active Substance: ACETAMINOPHEN\DEXTROMETHORPHAN HYDROBROMIDE\DOXYLAMINE SUCCINATE
  17. GUAIFENESIN ER [Concomitant]
     Active Substance: GUAIFENESIN
  18. HYDROCODONE [Concomitant]
     Active Substance: HYDROCODONE
  19. LYRICA [Concomitant]
     Active Substance: PREGABALIN
  20. MULTIVITAMINS [Concomitant]
     Active Substance: VITAMINS
  21. LIDOCAINE. [Concomitant]
     Active Substance: LIDOCAINE
  22. SINGULAIR [Concomitant]
     Active Substance: MONTELUKAST SODIUM
  23. VOLTAREN [Concomitant]
     Active Substance: DICLOFENAC SODIUM
  24. CALMS FORTE [Concomitant]
  25. METAXALONE. [Concomitant]
     Active Substance: METAXALONE
  26. ADDERALL [Concomitant]
     Active Substance: AMPHETAMINE ASPARTATE\AMPHETAMINE SULFATE\DEXTROAMPHETAMINE SACCHARATE\DEXTROAMPHETAMINE SULFATE
  27. EPIPEN [Concomitant]
     Active Substance: EPINEPHRINE
  28. PROAIR HFA [Concomitant]
     Active Substance: ALBUTEROL SULFATE
  29. PROMETHAZINE [Concomitant]
     Active Substance: PROMETHAZINE\PROMETHAZINE HYDROCHLORIDE
  30. AMITIZA [Concomitant]
     Active Substance: LUBIPROSTONE
  31. XYREM [Suspect]
     Active Substance: SODIUM OXYBATE
     Dosage: 3 G, BID
     Route: 048
     Dates: start: 200804, end: 200806
  32. XYREM [Suspect]
     Active Substance: SODIUM OXYBATE
     Dosage: 4.5 G, BID
     Route: 048
     Dates: start: 200806, end: 2008
  33. OPANA ER [Concomitant]
     Active Substance: OXYMORPHONE HYDROCHLORIDE
  34. KETOROLAC TROMETHALINE [Concomitant]
  35. NORVASC [Concomitant]
     Active Substance: AMLODIPINE BESYLATE
  36. ZANAFLEX [Concomitant]
     Active Substance: TIZANIDINE HYDROCHLORIDE
  37. XYREM [Suspect]
     Active Substance: SODIUM OXYBATE
     Indication: NARCOLEPSY
     Dosage: 2.25 G, BID
     Route: 048
     Dates: start: 200803, end: 200804
  38. XYREM [Suspect]
     Active Substance: SODIUM OXYBATE
     Dosage: 4.5 G, BID
     Route: 048
     Dates: start: 201109
  39. DICLOFENAC [Concomitant]
     Active Substance: DICLOFENAC
  40. DULCOLAX NOS [Concomitant]
     Active Substance: BISACODYL OR DOCUSATE SODIUM
  41. NORCO [Concomitant]
     Active Substance: ACETAMINOPHEN\HYDROCODONE BITARTRATE
  42. DIPHENHYDRAMINE. [Concomitant]
     Active Substance: DIPHENHYDRAMINE
  43. ULTRAM [Concomitant]
     Active Substance: TRAMADOL HYDROCHLORIDE
  44. MEGESTROL ACETATE. [Concomitant]
     Active Substance: MEGESTROL ACETATE
  45. PREDNISONE. [Concomitant]
     Active Substance: PREDNISONE
  46. TREXIMET [Concomitant]
     Active Substance: NAPROXEN SODIUM\SUMATRIPTAN SUCCINATE
  47. TRAZODONE HYDROCHLORIDE. [Concomitant]
     Active Substance: TRAZODONE HYDROCHLORIDE
  48. GABAPENTIN. [Concomitant]
     Active Substance: GABAPENTIN

REACTIONS (7)
  - Sleep terror [Unknown]
  - Unevaluable event [Unknown]
  - Blood pressure increased [Unknown]
  - Vomiting [Unknown]
  - Insomnia [Unknown]
  - Memory impairment [Unknown]
  - Palpitations [Unknown]
